FAERS Safety Report 4735283-1 (Version None)
Quarter: 2005Q3

REPORT INFORMATION
  Report Type: 
  Country: None (occurrence: None)
  Receive Date: 20050803
  Receipt Date: 20050715
  Transmission Date: 20060218
  Serious: Yes (Hospitalization)
  Sender: FDA-Public Use
  Company Number: USA0507102924

PATIENT
  Age: 72 Year
  Sex: Male

DRUGS (1)
  1. GEMZAR [Suspect]
     Indication: NON-SMALL CELL LUNG CANCER
     Dates: start: 20050713

REACTIONS (4)
  - ERYTHEMA [None]
  - NECROSIS [None]
  - RASH PUSTULAR [None]
  - SKIN ULCER [None]
